FAERS Safety Report 17338083 (Version 1)
Quarter: 2020Q1

REPORT INFORMATION
  Report Type: Spontaneous
  Country: US (occurrence: US)
  Receive Date: 20200129
  Receipt Date: 20200129
  Transmission Date: 20200409
  Serious: Yes (Other)
  Sender: FDA-Public Use
  Company Number: US-ABBVIE-20K-163-3252602-00

PATIENT
  Age: 34 Year
  Sex: Female
  Weight: 93.07 kg

DRUGS (1)
  1. SKYRIZI [Suspect]
     Active Substance: RISANKIZUMAB-RZAA
     Indication: PSORIASIS
     Route: 058
     Dates: start: 201907

REACTIONS (6)
  - Catatonia [Recovered/Resolved]
  - Bipolar disorder [Not Recovered/Not Resolved]
  - Hallucination, visual [Recovering/Resolving]
  - Hallucination, auditory [Recovering/Resolving]
  - Time perception altered [Recovering/Resolving]
  - Somnolence [Not Recovered/Not Resolved]

NARRATIVE: CASE EVENT DATE: 201910
